FAERS Safety Report 14334976 (Version 1)
Quarter: 2017Q4

REPORT INFORMATION
  Report Type: Spontaneous
  Country: TW (occurrence: TW)
  Receive Date: 20171229
  Receipt Date: 20171229
  Transmission Date: 20180321
  Serious: Yes (Other)
  Sender: FDA-Public Use
  Company Number: TW-ACCORD-049889

PATIENT
  Age: 35 Year
  Sex: Female

DRUGS (8)
  1. CLOZAPINE. [Suspect]
     Active Substance: CLOZAPINE
     Indication: SCHIZOPHRENIA
     Dosage: PREVIOUS RECEIVED WITH A GRADUALLY INCREASING DOSE, TAKEN AGAIN AND TITRATED UPTO 200 MG GRADUALLY
  2. PALIPERIDONE/PALIPERIDONE PALMITATE [Concomitant]
     Indication: SCHIZOPHRENIA
  3. FLUPENTIXOL/FLUPENTIXOL DECANOATE/FLUPENTIXOL DIHYDROCHLORIDE [Concomitant]
     Indication: SCHIZOPHRENIA
  4. AMISULPRIDE [Concomitant]
     Active Substance: AMISULPRIDE
     Indication: SCHIZOPHRENIA
     Dosage: 200-400 MG FOR 3 MONTHS
  5. ARIPIPRAZOLE. [Concomitant]
     Active Substance: ARIPIPRAZOLE
     Indication: SCHIZOPHRENIA
  6. RISPERDAL CONSTA [Concomitant]
     Active Substance: RISPERIDONE
     Indication: SCHIZOPHRENIA
     Dosage: EVERY 2 WEEKS FOR 2 MONTHS AND 1-2 MG ORAL FORM FOR 7 MONTHS
     Route: 030
  7. OLANZAPINE. [Concomitant]
     Active Substance: OLANZAPINE
     Indication: SCHIZOPHRENIA
     Dosage: 10-15 MG
  8. QUETIAPINE/QUETIAPINE FUMARATE [Concomitant]
     Indication: SCHIZOPHRENIA
     Dosage: 50-300 MG FOR 3 MONTH; REFUSED TAKING AT 300 MG

REACTIONS (3)
  - Dizziness [Unknown]
  - Tachycardia [Unknown]
  - Drug resistance [Unknown]
